FAERS Safety Report 11245936 (Version 1)
Quarter: 2015Q3

REPORT INFORMATION
  Report Type: Spontaneous
  Country: IN (occurrence: IN)
  Receive Date: 20150708
  Receipt Date: 20150708
  Transmission Date: 20151125
  Serious: Yes (Other)
  Sender: FDA-Public Use
  Company Number: IN-AXELLIA-000844

PATIENT

DRUGS (4)
  1. CEFTAZIDIME. [Concomitant]
     Active Substance: CEFTAZIDIME
  2. POLYMYXIN B. [Suspect]
     Active Substance: POLYMYXIN B
     Indication: SEPSIS
     Dosage: STARTED AT NORMAL THERAPEUTIC DOSES (25,000-40,000 UNITS/KG/D)
     Route: 042
  3. VANCOMYCIN [Concomitant]
     Active Substance: VANCOMYCIN
  4. AMIKACIN [Concomitant]
     Active Substance: AMIKACIN

REACTIONS (1)
  - Skin hyperpigmentation [Unknown]
